FAERS Safety Report 9340679 (Version 2)
Quarter: 2013Q3

REPORT INFORMATION
  Report Type: Spontaneous
  Country: BR (occurrence: BR)
  Receive Date: 20130610
  Receipt Date: 20130723
  Transmission Date: 20140515
  Serious: Yes (Other)
  Sender: FDA-Public Use
  Company Number: BR-GLAXOSMITHKLINE-A1026270A

PATIENT
  Sex: Male
  Weight: 91 kg

DRUGS (1)
  1. SERETIDE [Suspect]
     Indication: ASTHMA
     Dosage: 1U PER DAY
     Route: 055
     Dates: start: 2008

REACTIONS (1)
  - Nephrolithiasis [Not Recovered/Not Resolved]
